FAERS Safety Report 4975551-1 (Version None)
Quarter: 2006Q2

REPORT INFORMATION
  Report Type: 
  Country: None (occurrence: None)
  Receive Date: 20060410
  Receipt Date: 20060323
  Transmission Date: 20061013
  Serious: Yes (Disabling, Other)
  Sender: FDA-Public Use
  Company Number: GB200601002232

PATIENT
  Age: 41 Year
  Sex: Male

DRUGS (10)
  1. HUMULIN N [Suspect]
     Indication: DIABETES MELLITUS NON-INSULIN-DEPENDENT
     Dosage: 11 U, EACH EVENING, SUBCUTANEOUS
     Route: 058
     Dates: start: 20060112, end: 20060114
  2. HUMALOG MIX 75/25 [Suspect]
     Indication: DIABETES MELLITUS
     Dosage: 18 U, EACH MORNING,
  3. HUMALOG [Suspect]
     Indication: DIABETES MELLITUS
     Dosage: 3 U,
     Dates: start: 20060112, end: 20060113
  4. GAVISCON [Concomitant]
  5. ALGICON (ALUMINIUM HYDROXIDE-MAGNESIUM CARBONATE GEL, MAGNESIUM ALGINA [Concomitant]
  6. MUCOGEL (ALUMINIUM HYDROXIDE, MAGNESIUM HYDROXIDE) [Concomitant]
  7. DICLOFENAC POTASSIUM [Concomitant]
  8. DICLOFENAC (DICLOFENAC) [Concomitant]
  9. INSULATARD NPH HUMAN [Concomitant]
  10. METFORMIN [Concomitant]

REACTIONS (5)
  - BLOOD GLUCOSE FLUCTUATION [None]
  - FALL [None]
  - INJECTION SITE ERYTHEMA [None]
  - PARAESTHESIA [None]
  - PNEUMONIA [None]
